FAERS Safety Report 15804824 (Version 1)
Quarter: 2019Q1

REPORT INFORMATION
  Report Type: Spontaneous
  Country: IR (occurrence: IR)
  Receive Date: 20190109
  Receipt Date: 20190109
  Transmission Date: 20190417
  Serious: Yes (Life-Threatening, Hospitalization, Other)
  Sender: FDA-Public Use
  Company Number: IR-JNJFOC-20190101914

PATIENT
  Age: 61 Year
  Sex: Male

DRUGS (3)
  1. MINOXIDIL 5% [Suspect]
     Active Substance: MINOXIDIL
     Route: 048
  2. LOSARTAN. [Concomitant]
     Active Substance: LOSARTAN
     Indication: HYPERTENSION
     Route: 048
  3. MINOXIDIL 5% [Suspect]
     Active Substance: MINOXIDIL
     Indication: PRODUCT USED FOR UNKNOWN INDICATION
     Route: 048
     Dates: start: 20171223

REACTIONS (8)
  - Angina unstable [Recovered/Resolved]
  - Accidental overdose [Recovered/Resolved]
  - Tachycardia [Recovering/Resolving]
  - Blood pressure decreased [Recovered/Resolved]
  - Coronary artery disease [Recovered/Resolved]
  - Electrocardiogram ST segment elevation [Recovered/Resolved]
  - Electrocardiogram ST segment depression [Recovered/Resolved]
  - Agitation [Recovered/Resolved]

NARRATIVE: CASE EVENT DATE: 20171223
